FAERS Safety Report 9511574 (Version 1)
Quarter: 2013Q3

REPORT INFORMATION
  Report Type: Spontaneous
  Country: MX (occurrence: MX)
  Receive Date: 20130910
  Receipt Date: 20130910
  Transmission Date: 20140515
  Serious: Yes (Other)
  Sender: FDA-Public Use
  Company Number: PHHY2013MX098589

PATIENT
  Age: 80 Year
  Sex: Female

DRUGS (2)
  1. TRILEPTAL [Suspect]
     Indication: PAIN IN JAW
     Dosage: 0.25 DF, BID (0.25 DF IN THE MORNING AND 0.25 DF AT NIGHT)
     Route: 048
     Dates: start: 201308
  2. TRILEPTAL [Suspect]
     Dosage: 0.5 DF, BID (0.5 DF IN THE MORNING AND 0.5 DF AT NIGHT)
     Route: 048

REACTIONS (1)
  - Diabetes mellitus [Not Recovered/Not Resolved]
